FAERS Safety Report 4693379-7 (Version None)
Quarter: 2005Q2

REPORT INFORMATION
  Report Type: 
  Country: None (occurrence: None)
  Receive Date: 20050615
  Receipt Date: 20050525
  Transmission Date: 20051028
  Serious: Yes (Hospitalization)
  Sender: FDA-Public Use
  Company Number: 2003187577US

PATIENT
  Age: 53 Year
  Sex: Female

DRUGS (4)
  1. ZYVOX [Suspect]
     Indication: SEPSIS
     Dosage: 1200 MG (600 MG, BID),ORAL
     Route: 048
     Dates: start: 20031001
  2. ZITHROMAX [Concomitant]
  3. VANCOMYCIN [Concomitant]
  4. MEROPENEM (MEROPENEM) [Concomitant]

REACTIONS (9)
  - ATRIAL FIBRILLATION [None]
  - CONFUSIONAL STATE [None]
  - DIARRHOEA [None]
  - EMBOLIC STROKE [None]
  - LACTIC ACIDOSIS [None]
  - LETHARGY [None]
  - LEUKAEMIA RECURRENT [None]
  - MYCOBACTERIAL INFECTION [None]
  - NAUSEA [None]
